FAERS Safety Report 5318074-2 (Version None)
Quarter: 2007Q2

REPORT INFORMATION
  Report Type: 
  Country: None (occurrence: None)
  Receive Date: 20070507
  Receipt Date: 20070427
  Transmission Date: 20071010
  Serious: Yes (Other)
  Sender: FDA-Public Use
  Company Number: BE-JNJFOC-20070500294

PATIENT
  Age: 66 Year
  Sex: Female

DRUGS (1)
  1. REMICADE [Suspect]
     Indication: RHEUMATOID ARTHRITIS
     Route: 042
     Dates: start: 20040701, end: 20061001

REACTIONS (5)
  - ANAPHYLACTIC REACTION [None]
  - INFUSION RELATED REACTION [None]
  - LARYNGOSPASM [None]
  - OEDEMA [None]
  - URTICARIA [None]
